FAERS Safety Report 23623116 (Version 1)
Quarter: 2024Q1

REPORT INFORMATION
  Report Type: Spontaneous
  Country: US (occurrence: None)
  Receive Date: 20240312
  Receipt Date: 20240312
  Transmission Date: 20240410
  Serious: Yes (Disabling)
  Sender: FDA-Public Use
  Company Number: None

PATIENT
  Age: 32 Year
  Sex: Female
  Weight: 81 kg

DRUGS (9)
  1. WEGOVY [Suspect]
     Active Substance: SEMAGLUTIDE
     Indication: Obesity
     Dosage: OTHER QUANTITY : 1 INJECTION(S);?OTHER FREQUENCY : ONCE WEEKLY;?
     Route: 058
     Dates: start: 20240308, end: 20240308
  2. ESTARYLLA [Concomitant]
     Active Substance: ETHINYL ESTRADIOL\NORGESTIMATE
  3. ADDERALL [Concomitant]
     Active Substance: AMPHETAMINE ASPARTATE\AMPHETAMINE SULFATE\DEXTROAMPHETAMINE SACCHARATE\DEXTROAMPHETAMINE SULFATE
  4. ESCITALOPRAM [Concomitant]
     Active Substance: ESCITALOPRAM OXALATE
  5. LORATADINE [Concomitant]
     Active Substance: LORATADINE
  6. ADVIL [Concomitant]
     Active Substance: IBUPROFEN
  7. VITAMINS [Concomitant]
     Active Substance: VITAMINS
  8. CRANBERRY [Concomitant]
     Active Substance: CRANBERRY
  9. CREATINE [Concomitant]
     Active Substance: CREATINE

REACTIONS (4)
  - Heart rate increased [None]
  - Paraesthesia [None]
  - Feeling of body temperature change [None]
  - Palpitations [None]

NARRATIVE: CASE EVENT DATE: 20240310
